FAERS Safety Report 16110875 (Version 1)
Quarter: 2019Q1

REPORT INFORMATION
  Report Type: Spontaneous
  Country: CZ (occurrence: CZ)
  Receive Date: 20190325
  Receipt Date: 20190325
  Transmission Date: 20190418
  Serious: Yes (Hospitalization, Other)
  Sender: FDA-Public Use
  Company Number: CZ-SUN PHARMACEUTICAL INDUSTRIES LTD-2019RR-202837

PATIENT
  Age: 45 Year
  Sex: Female

DRUGS (7)
  1. PACLITAXEL. [Suspect]
     Active Substance: PACLITAXEL
     Dosage: UNK ()
     Route: 065
     Dates: start: 201208
  2. GEMCITABINE [Suspect]
     Active Substance: GEMCITABINE\GEMCITABINE HYDROCHLORIDE
     Indication: OVARIAN CANCER
     Dosage: ()
     Route: 065
     Dates: start: 2018
  3. CARBOPLATIN. [Suspect]
     Active Substance: CARBOPLATIN
     Indication: OVARIAN CANCER
     Dosage: UNK ()
     Route: 065
     Dates: start: 201208
  4. PACLITAXEL. [Suspect]
     Active Substance: PACLITAXEL
     Indication: OVARIAN CANCER
     Dosage: UNK ()
     Route: 065
     Dates: start: 2010
  5. PACLITAXEL. [Suspect]
     Active Substance: PACLITAXEL
     Dosage: TOTAL OF THREE SERIES OF ADJUVANT CHEMOTHERAPY WERE ADMINISTERED () ; CYCLICAL
     Route: 065
  6. CARBOPLATIN. [Suspect]
     Active Substance: CARBOPLATIN
     Dosage: TOTAL OF THREE SERIES OF ADJUVANT CHEMOTHERAPY WERE ADMINISTERED () ; CYCLICAL
     Route: 065
  7. CARBOPLATIN. [Suspect]
     Active Substance: CARBOPLATIN
     Dosage: UNK ()
     Route: 065
     Dates: start: 2017

REACTIONS (12)
  - Metastases to liver [Recovering/Resolving]
  - Dyspepsia [Recovering/Resolving]
  - Vomiting [Recovering/Resolving]
  - Intestinal metastasis [Recovering/Resolving]
  - Malignant neoplasm progression [Recovering/Resolving]
  - Abdominal pain [Recovering/Resolving]
  - Metastases to bladder [Recovering/Resolving]
  - Neutropenia [Recovered/Resolved]
  - Metastases to stomach [Recovering/Resolving]
  - Intestinal stenosis [Recovering/Resolving]
  - Metastases to lymph nodes [Recovering/Resolving]
  - Haematotoxicity [Unknown]

NARRATIVE: CASE EVENT DATE: 201202
